FAERS Safety Report 4450775-0 (Version None)
Quarter: 2004Q3

REPORT INFORMATION
  Report Type: 
  Country: None (occurrence: None)
  Receive Date: 20040914
  Receipt Date: 20040914
  Transmission Date: 20050211
  Serious: Yes (Life-Threatening, Hospitalization, Disabling)
  Sender: FDA-Public Use
  Company Number: None

PATIENT
  Sex: Male
  Weight: 54.4316 kg

DRUGS (2)
  1. PENICILLIN [Suspect]
     Dates: start: 19910911, end: 19920225
  2. MOX AND MELOSIDE [Suspect]

REACTIONS (1)
  - STEVENS-JOHNSON SYNDROME [None]
